FAERS Safety Report 20614329 (Version 1)
Quarter: 2022Q1

REPORT INFORMATION
  Report Type: Spontaneous
  Country: BR (occurrence: BR)
  Receive Date: 20220321
  Receipt Date: 20220321
  Transmission Date: 20220423
  Serious: Yes (Death)
  Sender: FDA-Public Use
  Company Number: BR-BIOGEN-2022BI01105431

PATIENT
  Age: 2 Year
  Sex: Male
  Weight: 10.8 kg

DRUGS (1)
  1. SPINRAZA [Suspect]
     Active Substance: NUSINERSEN
     Indication: Spinal muscular atrophy
     Route: 037
     Dates: end: 20220216

REACTIONS (2)
  - Death [Fatal]
  - Procedural pain [Unknown]

NARRATIVE: CASE EVENT DATE: 20220309
